FAERS Safety Report 9280897 (Version 1)
Quarter: 2013Q2

REPORT INFORMATION
  Report Type: Spontaneous
  Country: US (occurrence: US)
  Receive Date: 20130509
  Receipt Date: 20130509
  Transmission Date: 20140414
  Serious: Yes (Hospitalization)
  Sender: FDA-Public Use
  Company Number: US-BRISTOL-MYERS SQUIBB COMPANY-18850065

PATIENT
  Age: 81 Year
  Sex: Male

DRUGS (1)
  1. SPRYCEL [Suspect]
     Indication: NEOPLASM MALIGNANT
     Dates: start: 20130319

REACTIONS (2)
  - Fall [Unknown]
  - Femur fracture [Unknown]
